FAERS Safety Report 10128222 (Version 1)
Quarter: 2014Q2

REPORT INFORMATION
  Report Type: Spontaneous
  Country: US (occurrence: US)
  Receive Date: 20140428
  Receipt Date: 20140428
  Transmission Date: 20141212
  Serious: No
  Sender: FDA-Public Use
  Company Number: US-BIOGENIDEC-2014BI035661

PATIENT
  Age: 54 Year
  Sex: Female

DRUGS (16)
  1. TECFIDERA [Suspect]
     Indication: MULTIPLE SCLEROSIS
     Dates: start: 201404
  2. TECFIDERA [Suspect]
     Indication: MULTIPLE SCLEROSIS
     Dates: start: 20140409
  3. ALLERGY RELIEF [Concomitant]
  4. BIOTIN [Concomitant]
  5. CALCIUM [Concomitant]
  6. COLLAGEN [Concomitant]
  7. FISH OIL [Concomitant]
  8. IBUPROFEN [Concomitant]
  9. LEXAPRO [Concomitant]
  10. MAGNESIUM [Concomitant]
  11. MAXALT [Concomitant]
  12. VITAMIN B COMPLEX [Concomitant]
  13. VITAMIN C [Concomitant]
  14. VITAMIN D [Concomitant]
  15. VITAMIN E [Concomitant]
  16. ZINC [Concomitant]

REACTIONS (2)
  - Asthenia [Not Recovered/Not Resolved]
  - Flushing [Unknown]
